FAERS Safety Report 19722478 (Version 5)
Quarter: 2022Q4

REPORT INFORMATION
  Report Type: Spontaneous
  Country: DE (occurrence: DE)
  Receive Date: 20210819
  Receipt Date: 20221212
  Transmission Date: 20230113
  Serious: Yes (Other)
  Sender: FDA-Public Use
  Company Number: DE-AMGEN-DEUSP2021031780

PATIENT
  Age: 54 Year
  Sex: Female

DRUGS (2)
  1. ADALIMUMAB [Suspect]
     Active Substance: ADALIMUMAB
     Indication: Ankylosing spondylitis
     Dosage: UNK
     Route: 065
  2. ADALIMUMAB [Suspect]
     Active Substance: ADALIMUMAB
     Indication: Iridocyclitis

REACTIONS (7)
  - Uveitis [Recovered/Resolved]
  - Retinal vasculitis [Recovered/Resolved]
  - Cystoid macular oedema [Recovered/Resolved]
  - Hilar lymphadenopathy [Unknown]
  - Chorioretinitis [Recovered/Resolved]
  - Disease recurrence [Recovered/Resolved]
  - Ocular sarcoidosis [Unknown]
